FAERS Safety Report 5586013-5 (Version None)
Quarter: 2007Q4

REPORT INFORMATION
  Report Type: 
  Country: None (occurrence: None)
  Receive Date: 20071205
  Receipt Date: 20070719
  Transmission Date: 20080405
  Serious: Yes (Death)
  Sender: FDA-Public Use
  Company Number: HQWYE166720JUL07

PATIENT
  Sex: Male

DRUGS (7)
  1. EFFEXOR XR [Suspect]
     Indication: ANXIETY
     Dosage: 37.5 MG 1X PER 1 DAY, ORAL
     Route: 048
  2. EFFEXOR XR [Suspect]
     Indication: DEPRESSION
     Dosage: 37.5 MG 1X PER 1 DAY, ORAL
     Route: 048
  3. EFFEXOR XR [Suspect]
     Indication: PANIC REACTION
     Dosage: 37.5 MG 1X PER 1 DAY, ORAL
     Route: 048
  4. EFFEXOR XR [Suspect]
     Indication: SOCIAL PHOBIA
     Dosage: 37.5 MG 1X PER 1 DAY, ORAL
     Route: 048
  5. LEXAPRO [Concomitant]
  6. TRILEPTAL [Concomitant]
  7. DEPAKOTE [Concomitant]

REACTIONS (1)
  - COMPLETED SUICIDE [None]
